FAERS Safety Report 9170137 (Version 1)
Quarter: 2013Q1

REPORT INFORMATION
  Report Type: Spontaneous
  Country: US (occurrence: None)
  Receive Date: 20130311
  Receipt Date: 20130311
  Transmission Date: 20140127
  Serious: Yes (Other)
  Sender: FDA-Public Use
  Company Number: 2013NL0082

PATIENT
  Age: 9 Year
  Sex: 0

DRUGS (1)
  1. ANAKINRA [Suspect]
     Dosage: 80 MG (80 MG, 1 IN  1D )
     Dates: start: 20121204, end: 20130226

REACTIONS (1)
  - Aspartate aminotransferase increased [None]
